FAERS Safety Report 10499856 (Version 1)
Quarter: 2014Q4

REPORT INFORMATION
  Report Type: Spontaneous
  Country: US (occurrence: US)
  Receive Date: 20141006
  Receipt Date: 20141006
  Transmission Date: 20150528
  Serious: No
  Sender: FDA-Public Use
  Company Number: US-AMGEN INC.-USASP2014058177

PATIENT
  Sex: Female

DRUGS (1)
  1. PROLIA [Suspect]
     Active Substance: DENOSUMAB
     Indication: PRODUCT USED FOR UNKNOWN INDICATION
     Dosage: UNK
     Route: 065
     Dates: start: 201311

REACTIONS (9)
  - Blood cholesterol increased [Unknown]
  - Mass [Unknown]
  - Localised infection [Unknown]
  - Dyspnoea [Unknown]
  - Neuralgia [Unknown]
  - Tooth fracture [Unknown]
  - Hypoaesthesia [Unknown]
  - Oropharyngeal pain [Unknown]
  - Toothache [Unknown]

NARRATIVE: CASE EVENT DATE: 2013
